FAERS Safety Report 4514878-4 (Version None)
Quarter: 2004Q4

REPORT INFORMATION
  Report Type: 
  Country: None (occurrence: None)
  Receive Date: 20041126
  Receipt Date: 20041118
  Transmission Date: 20050328
  Serious: Yes (Other)
  Sender: FDA-Public Use
  Company Number: 2004-11-1160

PATIENT
  Age: 58 Year
  Sex: Female

DRUGS (2)
  1. REBETOL [Suspect]
     Indication: HEPATITIS C
     Dosage: 600 MG BID ORAL
     Route: 048
     Dates: start: 20020212, end: 20031113
  2. PEGASYS (PEGYLATED INTERFERON ALFA-2B) INJECTABLE SOLUTION [Suspect]
     Indication: HEPATITIS C
     Dosage: 180 MG BID ORAL
     Route: 048
     Dates: start: 20020212, end: 20031113

REACTIONS (1)
  - CUTANEOUS SARCOIDOSIS [None]
